FAERS Safety Report 15690532 (Version 1)
Quarter: 2018Q4

REPORT INFORMATION
  Report Type: Spontaneous
  Country: US (occurrence: US)
  Receive Date: 20181126
  Receipt Date: 20181126
  Transmission Date: 20190205
  Serious: Yes (Hospitalization)
  Sender: FDA-Public Use
  Company Number: None

PATIENT
  Age: 72 Year
  Sex: Male

DRUGS (1)
  1. WARFARIN [Suspect]
     Active Substance: WARFARIN
     Indication: ATRIAL FIBRILLATION
     Route: 048
     Dates: start: 20150715

REACTIONS (6)
  - International normalised ratio increased [None]
  - Coronary artery disease [None]
  - Dieulafoy^s vascular malformation [None]
  - Catheterisation cardiac abnormal [None]
  - Gastrointestinal haemorrhage [None]
  - Troponin increased [None]

NARRATIVE: CASE EVENT DATE: 20181004
